FAERS Safety Report 5818468-2 (Version None)
Quarter: 2008Q3

REPORT INFORMATION
  Report Type: 
  Country: None (occurrence: None)
  Receive Date: 20080718
  Receipt Date: 20080708
  Transmission Date: 20090109
  Serious: Yes (Other)
  Sender: FDA-Public Use
  Company Number: 49919-1

PATIENT

DRUGS (2)
  1. BUMETANIDE [Suspect]
  2. OCTREOTIDE ACETATE INJ. PF 100MCG/ML (1ML) [Suspect]

REACTIONS (1)
  - MEDICATION ERROR [None]
